FAERS Safety Report 9004357 (Version 3)
Quarter: 2013Q1

REPORT INFORMATION
  Report Type: Report from Study
  Country: US (occurrence: US)
  Receive Date: 20130108
  Receipt Date: 20130211
  Transmission Date: 20140127
  Serious: Yes (Death, Hospitalization)
  Sender: FDA-Public Use
  Company Number: US-ACTELION-A-US2012-77120

PATIENT
  Age: 55 Year
  Sex: Female

DRUGS (4)
  1. TRACLEER [Suspect]
     Indication: PULMONARY ARTERIAL HYPERTENSION
     Dosage: 125
     Route: 048
  2. REMODULIN [Suspect]
  3. SILDENAFIL [Concomitant]
     Indication: PULMONARY ARTERIAL HYPERTENSION
  4. COUMADIN [Concomitant]

REACTIONS (5)
  - Death [Fatal]
  - Device occlusion [Recovering/Resolving]
  - Device issue [Recovering/Resolving]
  - Disease progression [Not Recovered/Not Resolved]
  - Cardiac failure [Not Recovered/Not Resolved]
